FAERS Safety Report 12425927 (Version 2)
Quarter: 2016Q2

REPORT INFORMATION
  Report Type: Spontaneous
  Country: JP (occurrence: JP)
  Receive Date: 20160601
  Receipt Date: 20160613
  Transmission Date: 20160815
  Serious: Yes (Other)
  Sender: FDA-Public Use
  Company Number: JP-MDT-ADR-2016-00966

PATIENT
  Age: 50 Year
  Sex: Female

DRUGS (1)
  1. GABALON [Suspect]
     Active Substance: BACLOFEN
     Dosage: 200 MCG/DAY
     Route: 037
     Dates: start: 20140116

REACTIONS (7)
  - Sensory loss [Recovering/Resolving]
  - Paralysis [Recovering/Resolving]
  - Spinal column stenosis [Recovering/Resolving]
  - Asthenia [Recovering/Resolving]
  - Neurological symptom [Recovering/Resolving]
  - Condition aggravated [Recovering/Resolving]
  - Hypoaesthesia [Recovering/Resolving]

NARRATIVE: CASE EVENT DATE: 201605
